FAERS Safety Report 8168000-6 (Version None)
Quarter: 2012Q1

REPORT INFORMATION
  Report Type: 
  Country: None (occurrence: None)
  Receive Date: 20120227
  Receipt Date: 20120221
  Transmission Date: 20120608
  Serious: Yes (Life-Threatening)
  Sender: FDA-Public Use
  Company Number: ES-GLAXOSMITHKLINE-Z0014309A

PATIENT
  Sex: Male

DRUGS (5)
  1. ZANAMIVIR [Suspect]
     Indication: INFLUENZA
     Dosage: 600MG TWICE PER DAY
     Route: 042
     Dates: start: 20120221, end: 20120221
  2. NOREPINEPHRINE BITARTRATE [Concomitant]
     Indication: VASOPRESSIVE THERAPY
     Dosage: 10MLH CONTINUOUS
     Route: 042
     Dates: start: 20120218
  3. MIDAZOLAM [Concomitant]
     Indication: SEDATION
     Dosage: 20MLH CONTINUOUS
     Route: 042
     Dates: start: 20120221
  4. FENTANYL CITRATE [Concomitant]
     Indication: ANALGESIC THERAPY
     Dosage: 900MCG CONTINUOUS
     Route: 042
     Dates: start: 20120221
  5. NIMBEX [Concomitant]
     Indication: SPINAL ANAESTHESIA
     Dosage: 4MLH CONTINUOUS
     Route: 042
     Dates: start: 20120221

REACTIONS (1)
  - RESPIRATORY FAILURE [None]
